FAERS Safety Report 25290277 (Version 1)
Quarter: 2025Q2

REPORT INFORMATION
  Report Type: Spontaneous
  Country: RU (occurrence: RU)
  Receive Date: 20250510
  Receipt Date: 20250510
  Transmission Date: 20250717
  Serious: Yes (Other)
  Sender: ROCHE
  Company Number: RU-ROCHE-10000278221

PATIENT
  Age: 36 Year
  Sex: Female

DRUGS (12)
  1. OBINUTUZUMAB [Suspect]
     Active Substance: OBINUTUZUMAB
     Indication: Follicular lymphoma
     Route: 065
     Dates: start: 20230118
  2. RITUXIMAB [Suspect]
     Active Substance: RITUXIMAB
     Indication: Follicular lymphoma
     Route: 065
  3. MOSUNETUZUMAB [Suspect]
     Active Substance: MOSUNETUZUMAB
     Indication: Follicular lymphoma
     Route: 065
     Dates: start: 20250327
  4. MOSUNETUZUMAB [Suspect]
     Active Substance: MOSUNETUZUMAB
     Route: 065
     Dates: start: 20250403
  5. MOSUNETUZUMAB [Suspect]
     Active Substance: MOSUNETUZUMAB
     Route: 065
     Dates: start: 20250410, end: 20250418
  6. CYCLOPHOSPHAMIDE [Suspect]
     Active Substance: CYCLOPHOSPHAMIDE
     Indication: Follicular lymphoma
     Route: 065
     Dates: start: 20230118
  7. DOXORUBICIN [Suspect]
     Active Substance: DOXORUBICIN
     Indication: Follicular lymphoma
     Route: 065
     Dates: start: 20230118
  8. VINCRISTINE [Suspect]
     Active Substance: VINCRISTINE
     Indication: Follicular lymphoma
     Route: 065
     Dates: start: 20230118
  9. PREDNISOLONE [Suspect]
     Active Substance: PREDNISOLONE
     Indication: Follicular lymphoma
     Route: 065
     Dates: start: 20230118
  10. Analgin [Concomitant]
  11. DIPHENHYDRAMINE [Concomitant]
     Active Substance: DIPHENHYDRAMINE
  12. DEXAMETHASONE [Concomitant]
     Active Substance: DEXAMETHASONE

REACTIONS (5)
  - Angioedema [Unknown]
  - Anaphylactic reaction [Unknown]
  - Infusion related reaction [Recovered/Resolved]
  - Pyrexia [Unknown]
  - Follicular lymphoma [Unknown]

NARRATIVE: CASE EVENT DATE: 20250327
